FAERS Safety Report 14334099 (Version 2)
Quarter: 2018Q3

REPORT INFORMATION
  Report Type: Spontaneous
  Country: IT (occurrence: IT)
  Receive Date: 20171228
  Receipt Date: 20180913
  Transmission Date: 20181010
  Serious: Yes (Hospitalization, Other)
  Sender: FDA-Public Use
  Company Number: IT-GILEAD-2017-0312575

PATIENT
  Age: 50 Year
  Sex: Male

DRUGS (20)
  1. NORVIR [Suspect]
     Active Substance: RITONAVIR
     Indication: HIV INFECTION
     Dosage: 100 MG, QD
     Route: 048
     Dates: start: 20091007, end: 20150722
  2. METHADONE [Concomitant]
     Active Substance: METHADONE HYDROCHLORIDE
     Indication: DRUG DEPENDENCE
     Route: 048
  3. TALOFEN [Concomitant]
     Active Substance: PROMAZINE HYDROCHLORIDE
     Dosage: 4 GM/100 MLM ?30ML BOTTLE SOLUTIONS
     Route: 048
  4. TRUVADA [Concomitant]
     Active Substance: EMTRICITABINE\TENOFOVIR DISOPROXIL FUMARATE
     Indication: HIV INFECTION
     Route: 048
  5. DIBASE [Concomitant]
     Active Substance: CHOLECALCIFEROL
  6. LAMIVUDINE. [Suspect]
     Active Substance: LAMIVUDINE
     Route: 065
  7. KIVEXA [Suspect]
     Active Substance: ABACAVIR SULFATE\LAMIVUDINE
     Indication: HIV INFECTION
     Dosage: 1 DF, UNK
     Route: 048
  8. SOVALDI [Suspect]
     Active Substance: SOFOSBUVIR
     Dosage: 400 MG, UNK
     Route: 065
  9. RIBAVIRIN. [Suspect]
     Active Substance: RIBAVIRIN
     Indication: CHRONIC HEPATITIS C
     Dosage: 1200 MG, QD
     Route: 048
     Dates: start: 20150603, end: 20151111
  10. LAMIVUDINE. [Suspect]
     Active Substance: LAMIVUDINE
     Indication: HIV INFECTION
     Route: 065
  11. DAKLINZA [Suspect]
     Active Substance: DACLATASVIR
     Indication: CHRONIC HEPATITIS C
     Dosage: 30 MG, QD
     Route: 048
     Dates: start: 20150603, end: 20150722
  12. NEORECORMON [Concomitant]
     Active Substance: ERYTHROPOIETIN
     Indication: ANAEMIA
  13. SOVALDI [Suspect]
     Active Substance: SOFOSBUVIR
     Indication: CHRONIC HEPATITIS C
     Dosage: 60 MG, UNK
     Route: 065
  14. DIBASE [Concomitant]
     Active Substance: CHOLECALCIFEROL
     Route: 048
  15. PERIDON                            /00498201/ [Concomitant]
     Active Substance: DOMPERIDONE
     Indication: NAUSEA
  16. NEORECORMON [Concomitant]
     Active Substance: ERYTHROPOIETIN
     Indication: ANAEMIA
  17. REYATAZ [Suspect]
     Active Substance: ATAZANAVIR SULFATE
     Indication: ACQUIRED IMMUNODEFICIENCY SYNDROME
     Dosage: 300 MG, QD
     Route: 048
     Dates: start: 20091007, end: 20150722
  18. GAVISCON ADVANCE                   /00926503/ [Concomitant]
     Indication: DYSPEPSIA
     Route: 048
  19. LAEVOLAC EPS [Concomitant]
     Route: 051
  20. TALOFEN [Concomitant]
     Active Substance: PROMAZINE HYDROCHLORIDE
     Route: 048

REACTIONS (6)
  - Nephrolithiasis [Recovered/Resolved]
  - Drug interaction [Unknown]
  - Haemoglobin decreased [Not Recovered/Not Resolved]
  - Biliary colic [Unknown]
  - Hyperbilirubinaemia [Recovering/Resolving]
  - Cholelithiasis [Recovered/Resolved]

NARRATIVE: CASE EVENT DATE: 20150722
